FAERS Safety Report 5371545-5 (Version None)
Quarter: 2007Q2

REPORT INFORMATION
  Report Type: 
  Country: None (occurrence: None)
  Receive Date: 20070625
  Receipt Date: 20070625
  Transmission Date: 20071010
  Serious: Yes (Death, Hospitalization)
  Sender: FDA-Public Use
  Company Number: None

PATIENT
  Age: 44 Year
  Sex: Female
  Weight: 116 kg

DRUGS (7)
  1. STAVUDINE [Suspect]
     Indication: HIV INFECTION
     Dosage: 40MG BID PO
     Route: 048
     Dates: start: 20061115, end: 20070529
  2. LAMIVUDINE [Suspect]
     Indication: HIV INFECTION
     Dosage: 150MG BID PO
     Route: 048
     Dates: start: 20061115, end: 20070529
  3. LOPINAVIR/RITONAVIR [Suspect]
     Indication: HIV INFECTION
     Dosage: 3 CAPSULES BID PO
     Route: 048
     Dates: start: 20061115, end: 20070529
  4. NIFEDIPINE [Concomitant]
  5. HYDROCHLORATHIAZIDE [Concomitant]
  6. GAVISCON [Concomitant]
  7. AUGMENTIN '125' [Concomitant]

REACTIONS (6)
  - BACTERIAL SEPSIS [None]
  - DIALYSIS [None]
  - GENERAL PHYSICAL HEALTH DETERIORATION [None]
  - LACTIC ACIDOSIS [None]
  - UPPER RESPIRATORY TRACT INFECTION [None]
  - VOMITING [None]
